FAERS Safety Report 10072071 (Version 1)
Quarter: 2014Q2

REPORT INFORMATION
  Report Type: Spontaneous
  Country: GB (occurrence: None)
  Receive Date: 20140409
  Receipt Date: 20140409
  Transmission Date: 20141212
  Serious: Yes (Hospitalization)
  Sender: FDA-Public Use
  Company Number: AUR-APL-2014-04256

PATIENT
  Age: 93 Year
  Sex: Female
  Weight: 47.7 kg

DRUGS (10)
  1. ALENDRONIC ACID (ALENDRONIC ACID) [Suspect]
     Indication: PRODUCT USED FOR UNKNOWN INDICATION
     Dates: start: 20131210
  2. ADCAL (CARBAZOCHROME) [Concomitant]
  3. ALLEVYN (AVANCE) [Concomitant]
  4. DOXYCYCLINE (DOXYCYCLINE) [Concomitant]
  5. FERROUS FUMARATE (FERROUS FUMARATE) [Concomitant]
  6. FLUCITHALMIC (FUSIDIC ACID) [Concomitant]
  7. HALLOPERIDOL (HALOPERIDOL) [Concomitant]
  8. LEVOTHYROXINE (LEVOTHYROXINE) [Concomitant]
  9. OMEPRAZOLE (OMEPRAZOLE) [Concomitant]
  10. PARACETAMOL (PARACETAMOL) [Concomitant]

REACTIONS (1)
  - Haematemesis [None]
